FAERS Safety Report 8845443 (Version 2)
Quarter: 2013Q1

REPORT INFORMATION
  Report Type: Spontaneous
  Country: US (occurrence: US)
  Receive Date: 20121017
  Receipt Date: 20130320
  Transmission Date: 20140127
  Serious: Yes (Other)
  Sender: FDA-Public Use
  Company Number: US-PFIZER INC-2012257308

PATIENT
  Sex: Female

DRUGS (2)
  1. LYRICA [Suspect]
     Indication: FIBROMYALGIA
     Dosage: UNK
  2. LYRICA [Suspect]
     Dosage: UNK

REACTIONS (6)
  - Dehydration [Unknown]
  - Malaise [Unknown]
  - Abdominal pain upper [Unknown]
  - Back pain [Unknown]
  - Muscle spasms [Unknown]
  - Gait disturbance [Unknown]
